FAERS Safety Report 19802832 (Version 1)
Quarter: 2021Q3

REPORT INFORMATION
  Report Type: Spontaneous
  Country: US (occurrence: US)
  Receive Date: 20210903
  Receipt Date: 20210903
  Transmission Date: 20211014
  Serious: No
  Sender: FDA-Public Use
  Company Number: None

PATIENT
  Sex: Female

DRUGS (1)
  1. KISQALI [Suspect]
     Active Substance: RIBOCICLIB
     Indication: BREAST CANCER FEMALE
     Dosage: 600MG ONCE DAILY 21ON/7OFF ORAL
     Route: 048
     Dates: start: 202102

REACTIONS (4)
  - Therapy interrupted [None]
  - Rash [None]
  - Heart rate irregular [None]
  - Hepatic enzyme increased [None]
